FAERS Safety Report 9206308 (Version 2)
Quarter: 2013Q2

REPORT INFORMATION
  Report Type: Report from Study
  Country: MX (occurrence: MX)
  Receive Date: 20130403
  Receipt Date: 20130430
  Transmission Date: 20140414
  Serious: Yes (Death, Other)
  Sender: FDA-Public Use
  Company Number: PHHY2012MX040071

PATIENT
  Age: 25 Year
  Sex: Female
  Weight: 42 kg

DRUGS (6)
  1. GLIVEC [Suspect]
     Indication: CHRONIC MYELOID LEUKAEMIA
     Dosage: 600 MG, DAILY
     Route: 048
     Dates: start: 20110921
  2. GLIVEC [Suspect]
     Dosage: 400 MG, DAILY
     Route: 048
     Dates: start: 20120426
  3. GLIVEC [Suspect]
     Dosage: 600 MG, DAILY
     Route: 048
     Dates: start: 20120920
  4. GLIVEC [Suspect]
     Dosage: 400 MG, UNK
     Route: 048
  5. HIDROXIUREA [Concomitant]
     Dosage: 2 UNK, UNK
     Route: 048
  6. HYDREA [Concomitant]
     Dosage: UNK UKN, UNK
     Dates: start: 200812

REACTIONS (5)
  - Chronic myeloid leukaemia transformation [Fatal]
  - Tumour lysis syndrome [Fatal]
  - Premature delivery [Unknown]
  - Exposure during pregnancy [Unknown]
  - No therapeutic response [Unknown]
